FAERS Safety Report 6902535-6 (Version None)
Quarter: 2010Q3

REPORT INFORMATION
  Report Type: 
  Country: None (occurrence: None)
  Receive Date: 20100730
  Receipt Date: 20100721
  Transmission Date: 20110219
  Serious: Yes (Other)
  Sender: FDA-Public Use
  Company Number: 2010JP004223

PATIENT
  Age: 61 Year
  Sex: Female

DRUGS (3)
  1. PROGRAF [Suspect]
     Indication: RENAL TRANSPLANT
  2. PREDONNIE (PREDNISOLONE) [Concomitant]
  3. CELLCEPT [Concomitant]

REACTIONS (7)
  - DELUSION OF REFERENCE [None]
  - HALLUCINATIONS, MIXED [None]
  - MALAISE [None]
  - PERSECUTORY DELUSION [None]
  - POST PROCEDURAL COMPLICATION [None]
  - RENAL IMPAIRMENT [None]
  - TREMOR [None]
